FAERS Safety Report 19039414 (Version 2)
Quarter: 2024Q2

REPORT INFORMATION
  Report Type: Spontaneous
  Country: GB (occurrence: GB)
  Receive Date: 20210322
  Receipt Date: 20240621
  Transmission Date: 20240716
  Serious: Yes (Other)
  Sender: FDA-Public Use
  Company Number: GB-MHRA-EYC 00242884

PATIENT
  Age: 46 Year
  Sex: Male

DRUGS (10)
  1. FLUTICASONE FUROATE [Suspect]
     Active Substance: FLUTICASONE FUROATE
     Indication: Chronic obstructive pulmonary disease
     Dosage: DURATION: 714 DAYS
     Route: 055
     Dates: start: 20190101, end: 20201215
  2. DARUNAVIR [Concomitant]
     Active Substance: DARUNAVIR
     Indication: Ill-defined disorder
     Route: 065
  3. LAMIVUDINE [Concomitant]
     Active Substance: LAMIVUDINE
     Indication: Ill-defined disorder
     Route: 065
  4. MIRTAZAPINE [Concomitant]
     Active Substance: MIRTAZAPINE
     Indication: Ill-defined disorder
     Route: 065
  5. OLANZAPINE [Concomitant]
     Active Substance: OLANZAPINE
     Indication: Ill-defined disorder
     Route: 065
  6. PREGABALIN [Concomitant]
     Active Substance: PREGABALIN
     Indication: Ill-defined disorder
     Route: 065
  7. RITONAVIR [Concomitant]
     Active Substance: RITONAVIR
     Indication: Ill-defined disorder
     Route: 065
  8. SALBUTAMOL BASE [Concomitant]
     Indication: Ill-defined disorder
     Route: 065
  9. TIOTROPIUM [Concomitant]
     Active Substance: TIOTROPIUM
     Indication: Ill-defined disorder
     Route: 065
  10. FLUTICASONE FUROATE [Suspect]
     Active Substance: FLUTICASONE FUROATE
     Indication: Chronic obstructive pulmonary disease
     Dosage: DURATION: 714 DAYS
     Route: 055
     Dates: start: 20190101, end: 20201215

REACTIONS (1)
  - Adrenal insufficiency [Recovering/Resolving]

NARRATIVE: CASE EVENT DATE: 20201215
